FAERS Safety Report 8312725 (Version 5)
Quarter: 2013Q3

REPORT INFORMATION
  Report Type: Spontaneous
  Country: US (occurrence: US)
  Receive Date: 20111227
  Receipt Date: 20130912
  Transmission Date: 20140515
  Serious: Yes (Hospitalization, Other)
  Sender: FDA-Public Use
  Company Number: US-ROCHE-803092

PATIENT
  Sex: Female
  Weight: 63.56 kg

DRUGS (3)
  1. ACCUTANE [Suspect]
     Indication: ACNE
     Route: 065
     Dates: start: 1984, end: 1991
  2. TYLENOL [Concomitant]
     Indication: PYREXIA
  3. MIDOL CRAMP (UNITED STATES) [Concomitant]
     Indication: MUSCLE SPASMS

REACTIONS (10)
  - Colitis ulcerative [Unknown]
  - Crohn^s disease [Unknown]
  - Depression [Unknown]
  - Inflammatory bowel disease [Unknown]
  - Intestinal haemorrhage [Unknown]
  - Intestinal obstruction [Unknown]
  - Large intestine polyp [Unknown]
  - Female genital tract fistula [Unknown]
  - Diverticulitis [Unknown]
  - Irritable bowel syndrome [Unknown]
